FAERS Safety Report 5083034-6 (Version None)
Quarter: 2006Q3

REPORT INFORMATION
  Report Type: 
  Country: None (occurrence: None)
  Receive Date: 20060814
  Receipt Date: 20060803
  Transmission Date: 20061208
  Serious: Yes (Other)
  Sender: FDA-Public Use
  Company Number: GXKR2006DE04522

PATIENT
  Age: 65 Year
  Sex: Male

DRUGS (10)
  1. CARBOPLATIN [Suspect]
     Indication: MANTLE CELL LYMPHOMA
     Dosage: TOTAL DOSE 1.5 G
  2. ETOPOSIDE (NGX) (ETOPOSIDE) [Suspect]
     Indication: MANTLE CELL LYMPHOMA
     Dosage: TOTAL DOSE 2.5 G
  3. TREOSULFAN (TREOSULFAN) [Suspect]
     Indication: MANTLE CELL LYMPHOMA
     Dosage: TOTAL DOSE 70.6 G
  4. GRANISETRON  HCL [Concomitant]
  5. DEXAMETHASONE [Concomitant]
  6. PANTOPRAZOLE SODIUM [Concomitant]
  7. CIPROFLOXACIN [Concomitant]
  8. FLUCONAZOLE [Concomitant]
  9. HEPARIN [Concomitant]
  10. DIPEPTAMIN (AMINO ACIDS NOS) [Concomitant]

REACTIONS (9)
  - C-REACTIVE PROTEIN INCREASED [None]
  - HAEMOGLOBIN DECREASED [None]
  - PAROXYSMAL ARRHYTHMIA [None]
  - PERICARDITIS [None]
  - PLATELET COUNT DECREASED [None]
  - PNEUMONIA VIRAL [None]
  - PYREXIA [None]
  - RECTAL ABSCESS [None]
  - WHITE BLOOD CELL COUNT DECREASED [None]
